FAERS Safety Report 14978938 (Version 2)
Quarter: 2018Q3

REPORT INFORMATION
  Report Type: Spontaneous
  Country: PL (occurrence: PL)
  Receive Date: 20180606
  Receipt Date: 20180801
  Transmission Date: 20181010
  Serious: Yes (Disabling, Other)
  Sender: FDA-Public Use
  Company Number: PL-SA-2018SA140088

PATIENT
  Age: 62 Year
  Sex: Male
  Weight: 137 kg

DRUGS (6)
  1. STILNOX [Suspect]
     Active Substance: ZOLPIDEM TARTRATE
     Indication: INSOMNIA
     Dosage: 10 MG, UNK
     Route: 048
     Dates: start: 20170118, end: 20170916
  2. STILNOX [Interacting]
     Active Substance: ZOLPIDEM TARTRATE
     Indication: DEPRESSION
  3. SERTRALINE HYDROCHLORIDE. [Interacting]
     Active Substance: SERTRALINE HYDROCHLORIDE
     Indication: DEPRESSION
  4. SOTALOL. [Concomitant]
     Active Substance: SOTALOL
  5. SERTRALINE HYDROCHLORIDE. [Interacting]
     Active Substance: SERTRALINE HYDROCHLORIDE
     Indication: INSOMNIA
     Dosage: UNK
  6. WARFARIN [Interacting]
     Active Substance: WARFARIN

REACTIONS (4)
  - Apallic syndrome [Not Recovered/Not Resolved]
  - Incorrect drug administration duration [Unknown]
  - Ischaemic stroke [Recovered/Resolved with Sequelae]
  - Drug interaction [Unknown]

NARRATIVE: CASE EVENT DATE: 20170916
